FAERS Safety Report 8056047-X (Version None)
Quarter: 2011Q4

REPORT INFORMATION
  Report Type: 
  Country: None (occurrence: None)
  Receive Date: 20111219
  Receipt Date: 20110607
  Transmission Date: 20120403
  Serious: Yes (Hospitalization)
  Sender: FDA-Public Use
  Company Number: WAES 1106USA00963

PATIENT
  Age: 59 Year
  Sex: Female

DRUGS (3)
  1. CRESTOR [Concomitant]
  2. JANUVIA [Suspect]
     Indication: TYPE 2 DIABETES MELLITUS
     Dosage: 100 MG/DAILY/PO
     Route: 048
     Dates: start: 20110101, end: 20110606
  3. AVANDIA [Concomitant]

REACTIONS (1)
  - PANCREATITIS [None]
